FAERS Safety Report 5842331-4 (Version None)
Quarter: 2008Q3

REPORT INFORMATION
  Report Type: 
  Country: None (occurrence: None)
  Receive Date: 20080812
  Receipt Date: 20080728
  Transmission Date: 20090109
  Serious: Yes (Other)
  Sender: FDA-Public Use
  Company Number: FR-GENENTECH-265905

PATIENT

DRUGS (5)
  1. MABTHERA [Suspect]
     Indication: NEPHROTIC SYNDROME
     Dosage: 375 MG/M2, UNK
  2. MYCOPHENOLATE MOFETIL [Suspect]
     Indication: NEPHROTIC SYNDROME
     Dosage: 701 MG/M2, UNK
     Route: 065
  3. TACROLIMUS [Suspect]
     Indication: NEPHROTIC SYNDROME
     Dosage: 0.17 MG/M2, UNK
     Route: 065
  4. STEROIDS (UNK INGREDIENTS) [Suspect]
     Indication: NEPHROTIC SYNDROME
     Dosage: 38.9 MG/M2, UNK
     Route: 065
  5. PENTACARINAT [Suspect]
     Indication: PROPHYLAXIS
     Route: 065

REACTIONS (1)
  - PNEUMOCYSTIS JIROVECI PNEUMONIA [None]
